FAERS Safety Report 24531315 (Version 1)
Quarter: 2024Q4

REPORT INFORMATION
  Report Type: Report from Study
  Country: MX (occurrence: MX)
  Receive Date: 20241022
  Receipt Date: 20241022
  Transmission Date: 20250115
  Serious: No
  Sender: ROCHE
  Company Number: MX-ROCHE-3503181

PATIENT
  Sex: Male
  Weight: 36.0 kg

DRUGS (5)
  1. PULMOZYME [Suspect]
     Active Substance: DORNASE ALFA
     Indication: Cystic fibrosis
     Dosage: 1 SPRAY EVERY 24 HOURS FOR 30 DAYS
     Route: 055
     Dates: start: 20211006
  2. TOBRAMYCIN [Concomitant]
     Active Substance: TOBRAMYCIN\TOBRAMYCIN SULFATE
     Indication: Product used for unknown indication
     Dosage: 1 SPRAY EVERY 12 HOURS FOR 30 DAYS
     Route: 065
  3. CIPROFLOXACIN [Concomitant]
     Active Substance: CIPROFLOXACIN
     Indication: Product used for unknown indication
     Dosage: 2 TABLETS EVERY 12 HOURS 14 DAYS
     Route: 048
  4. ALBUTEROL [Concomitant]
     Active Substance: ALBUTEROL
     Indication: Cystic fibrosis
     Dosage: 2 SPRAYS EVERY 8 HOURS FOR 30 DAYS
     Route: 065
  5. FLUTICASONE [Concomitant]
     Active Substance: FLUTICASONE
     Indication: Cystic fibrosis
     Dosage: 2 SPRAYS EVERY 12 HOURS FOR 30 DAYS
     Route: 065

REACTIONS (4)
  - Weight increased [Unknown]
  - Pseudomonas test positive [Unknown]
  - Staphylococcus test positive [Unknown]
  - Breath sounds abnormal [Unknown]
